FAERS Safety Report 21084771 (Version 2)
Quarter: 2022Q3

REPORT INFORMATION
  Report Type: Spontaneous
  Country: US (occurrence: US)
  Receive Date: 20220714
  Receipt Date: 20220729
  Transmission Date: 20221026
  Serious: Yes (Death)
  Sender: FDA-Public Use
  Company Number: US-TEVA-2022-US-2053894

PATIENT
  Age: 47 Year
  Sex: Female

DRUGS (6)
  1. HYDROMORPHONE [Suspect]
     Active Substance: HYDROMORPHONE
     Indication: Procedural pain
     Dosage: 72 MILLIGRAM DAILY; SHE WAS PRESCRIBED IV HYDROMORPHONE 0.5MG EVERY 10MIN AS NEEDED FOR POST OPERATI
     Route: 042
  2. HYDROMORPHONE [Suspect]
     Active Substance: HYDROMORPHONE
     Dosage: BETWEEN 16.30 AND 01.06, SHE RECEIVED IV HYDROMORPHONE 12MG WITHOUT PROPER MONITORING (3 DOSES OF
     Route: 042
  3. VITAMINS [Concomitant]
     Active Substance: VITAMINS
     Indication: Vitamin supplementation
     Route: 065
  4. IBUPROFEN [Concomitant]
     Active Substance: IBUPROFEN
     Indication: Pain
     Dosage: ADMINISTERED AS NEEDED
     Route: 065
  5. PERCOCET [Concomitant]
     Active Substance: ACETAMINOPHEN\OXYCODONE HYDROCHLORIDE
     Indication: Incision site pain
     Dosage: ADMINISTERED 2 TABLETS
     Route: 065
  6. PHENERGAN [Concomitant]
     Active Substance: PROMETHAZINE HYDROCHLORIDE
     Indication: Nausea
     Route: 042

REACTIONS (2)
  - Death [Fatal]
  - Product monitoring error [Fatal]
